FAERS Safety Report 8232555-3 (Version None)
Quarter: 2012Q1

REPORT INFORMATION
  Report Type: 
  Country: None (occurrence: None)
  Receive Date: 20120323
  Receipt Date: 20120321
  Transmission Date: 20120608
  Serious: Yes (Life-Threatening, Hospitalization, Disabling, Other)
  Sender: FDA-Public Use
  Company Number: PHHY2012GB024660

PATIENT
  Age: 72 Year
  Sex: Female
  Weight: 82 kg

DRUGS (7)
  1. INDAPAMIDE [Suspect]
     Indication: HYPERTENSION
     Dosage: 2.5 MG, UNK
     Route: 048
     Dates: start: 20120301, end: 20120303
  2. OMEPRAZOLE [Concomitant]
     Dosage: 20 MG, QD
  3. TIOTROPIUM BROMIDE [Concomitant]
     Dosage: 18 MG, QD
  4. TRIMETHOPRIM [Concomitant]
     Dosage: 200 MG, BID
     Dates: start: 20120116
  5. VENTOLIN [Concomitant]
     Indication: CHRONIC OBSTRUCTIVE PULMONARY DISEASE
     Dosage: 100 UG, UNK
     Route: 055
  6. FLUTICASONE PROPIONATE/SALMETEROL [Concomitant]
     Dosage: 1 DF, BID
     Route: 055
  7. TRIMOVATE [Concomitant]
     Dosage: 1 DF, TID

REACTIONS (8)
  - MALAISE [None]
  - RENAL FAILURE ACUTE [None]
  - HYPOMAGNESAEMIA [None]
  - CONFUSIONAL STATE [None]
  - MYALGIA [None]
  - HYPOKALAEMIA [None]
  - CONVULSION [None]
  - HYPONATRAEMIA [None]
